FAERS Safety Report 14344722 (Version 2)
Quarter: 2018Q1

REPORT INFORMATION
  Report Type: Spontaneous
  Country: FR (occurrence: FR)
  Receive Date: 20180103
  Receipt Date: 20180129
  Transmission Date: 20180509
  Serious: Yes (Life-Threatening, Other)
  Sender: FDA-Public Use
  Company Number: FR-UCBSA-2017052130

PATIENT
  Age: 84 Year
  Sex: Male
  Weight: 96 kg

DRUGS (6)
  1. KEPPRA [Suspect]
     Active Substance: LEVETIRACETAM
     Indication: POST STROKE EPILEPSY
     Dosage: LEVETIRACETAM AT 250 MG MORNING AND 500 MG EVENING A DAY
     Route: 048
  2. IRBESARTAN. [Concomitant]
     Active Substance: IRBESARTAN
     Indication: PRODUCT USED FOR UNKNOWN INDICATION
  3. KEPPRA [Suspect]
     Active Substance: LEVETIRACETAM
     Indication: EPILEPSY
     Dosage: UNK, 2X/DAY (BID)
     Route: 048
     Dates: start: 201701
  4. CARDENSIEL [Concomitant]
     Active Substance: BISOPROLOL FUMARATE
     Indication: PRODUCT USED FOR UNKNOWN INDICATION
  5. AMLOR [Concomitant]
     Active Substance: AMLODIPINE BESYLATE
     Indication: PRODUCT USED FOR UNKNOWN INDICATION
  6. LASILIX [Concomitant]
     Active Substance: FUROSEMIDE
     Indication: PRODUCT USED FOR UNKNOWN INDICATION

REACTIONS (3)
  - Neoplasm malignant [Recovering/Resolving]
  - Intentional product misuse [Unknown]
  - Acne [Recovering/Resolving]

NARRATIVE: CASE EVENT DATE: 20170103
